FAERS Safety Report 16834111 (Version 2)
Quarter: 2019Q3

REPORT INFORMATION
  Report Type: Spontaneous
  Country: US (occurrence: US)
  Receive Date: 20190920
  Receipt Date: 20190924
  Transmission Date: 20191005
  Serious: Yes (Other)
  Sender: FDA-Public Use
  Company Number: US-PFIZER INC-2019403694

PATIENT
  Age: 80 Year
  Sex: Female
  Weight: 112 kg

DRUGS (1)
  1. IBRANCE [Suspect]
     Active Substance: PALBOCICLIB
     Indication: BREAST CANCER METASTATIC
     Dosage: 125 MG, CYCLIC (125 MG ONE CAPSULE DAILY FOR 21 DAYS ON, THEN OFF FOR 7 DAYS)
     Route: 048
     Dates: end: 201909

REACTIONS (6)
  - Skin disorder [Unknown]
  - Scratch [Unknown]
  - Skin discolouration [Unknown]
  - Dry skin [Unknown]
  - White blood cell count decreased [Unknown]
  - Pruritus [Unknown]

NARRATIVE: CASE EVENT DATE: 201909
